FAERS Safety Report 20601766 (Version 1)
Quarter: 2022Q1

REPORT INFORMATION
  Report Type: Spontaneous
  Country: TH (occurrence: TH)
  Receive Date: 20220316
  Receipt Date: 20220316
  Transmission Date: 20220423
  Serious: Yes (Other)
  Sender: FDA-Public Use
  Company Number: TH-NOVARTISPH-NVSC2021TH022974

PATIENT
  Age: 40 Year
  Sex: Female

DRUGS (5)
  1. VANCOMYCIN [Interacting]
     Active Substance: VANCOMYCIN
     Indication: Bacterial pyelonephritis
     Dosage: UNK
     Route: 065
  2. TELAVANCIN [Interacting]
     Active Substance: TELAVANCIN
     Indication: Product used for unknown indication
     Dosage: UNK
     Route: 065
  3. TEICOPLANIN [Interacting]
     Active Substance: TEICOPLANIN
     Indication: Product used for unknown indication
     Dosage: UNK
     Route: 065
  4. CEFTRIAXONE [Concomitant]
     Active Substance: CEFTRIAXONE
     Indication: Product used for unknown indication
     Dosage: UNK
     Route: 065
  5. DALBAVANCIN [Concomitant]
     Active Substance: DALBAVANCIN
     Indication: Product used for unknown indication
     Dosage: UNK
     Route: 065

REACTIONS (3)
  - Drug reaction with eosinophilia and systemic symptoms [Unknown]
  - Cross sensitivity reaction [Unknown]
  - Product use in unapproved indication [Unknown]
